FAERS Safety Report 4683874-9 (Version None)
Quarter: 2005Q2

REPORT INFORMATION
  Report Type: 
  Country: None (occurrence: None)
  Receive Date: 20050607
  Receipt Date: 20050228
  Transmission Date: 20051028
  Serious: Yes (Death)
  Sender: FDA-Public Use
  Company Number: JP-ROCHE-397349

PATIENT
  Age: 2 Year
  Sex: Male

DRUGS (4)
  1. TAMIFLU [Suspect]
     Indication: INFLUENZA
     Route: 048
     Dates: start: 20050224, end: 20050224
  2. TAMIFLU [Suspect]
     Route: 048
     Dates: start: 20050225, end: 20050225
  3. TAMIFLU [Suspect]
     Route: 048
     Dates: start: 20050226, end: 20050227
  4. PHENOBAL [Concomitant]
     Route: 048
     Dates: start: 20030408

REACTIONS (17)
  - ACIDOSIS [None]
  - ALANINE AMINOTRANSFERASE INCREASED [None]
  - ASPARTATE AMINOTRANSFERASE INCREASED [None]
  - ASPIRATION [None]
  - BLOOD PRESSURE IMMEASURABLE [None]
  - BRAIN OEDEMA [None]
  - CARDIAC FAILURE ACUTE [None]
  - CARDIO-RESPIRATORY ARREST [None]
  - DIARRHOEA [None]
  - HYPOVOLAEMIA [None]
  - INTRAVENTRICULAR HAEMORRHAGE [None]
  - METABOLIC ACIDOSIS [None]
  - MYDRIASIS [None]
  - PULMONARY OEDEMA [None]
  - SHOCK [None]
  - SOMNOLENCE [None]
  - VOMITING [None]
